FAERS Safety Report 20935486 (Version 1)
Quarter: 2022Q2

REPORT INFORMATION
  Report Type: Spontaneous
  Country: IN (occurrence: None)
  Receive Date: 20220609
  Receipt Date: 20220609
  Transmission Date: 20220720
  Serious: Yes (Other)
  Sender: FDA-Public Use
  Company Number: IN-SUPERNUS Pharmaceuticals, Inc.-SUP202206-001510

PATIENT
  Age: 42 Year
  Sex: Female

DRUGS (2)
  1. TOPIRAMATE [Suspect]
     Active Substance: TOPIRAMATE
     Indication: Migraine
  2. FLUNARIZINE [Concomitant]
     Active Substance: FLUNARIZINE
     Indication: Migraine
     Dosage: NOT PROVIDED

REACTIONS (2)
  - Uveitis [Recovered/Resolved]
  - Angle closure glaucoma [Recovered/Resolved]
